FAERS Safety Report 20973196 (Version 1)
Quarter: 2022Q2

REPORT INFORMATION
  Report Type: Report from Study
  Country: US (occurrence: US)
  Receive Date: 20220617
  Receipt Date: 20220617
  Transmission Date: 20220721
  Serious: Yes (Hospitalization)
  Sender: FDA-Public Use
  Company Number: US-GILEAD-2022-0585561

PATIENT
  Sex: Female

DRUGS (1)
  1. AZTREONAM LYSINE [Suspect]
     Active Substance: AZTREONAM LYSINE
     Indication: Bronchiectasis
     Dosage: RECONSTITUTE WUNK TID, 28 DAYS ON AND 28 DAYS OFF
     Route: 055

REACTIONS (2)
  - Influenza [Unknown]
  - Off label use [Unknown]
